FAERS Safety Report 4512905-1 (Version None)
Quarter: 2004Q4

REPORT INFORMATION
  Report Type: 
  Country: None (occurrence: None)
  Receive Date: 20041123
  Receipt Date: 20041123
  Transmission Date: 20050328
  Serious: Yes (Hospitalization)
  Sender: FDA-Public Use
  Company Number: None

PATIENT
  Age: 41 Year
  Sex: Female
  Weight: 61.6892 kg

DRUGS (2)
  1. PACLITAXEL [Suspect]
     Indication: BREAST CANCER
     Dosage: 91 MG OVER 24 HR X 30 DAYS IV
     Route: 042
     Dates: start: 20041102, end: 20041105
  2. CYTOXAN [Suspect]
     Indication: BREAST CANCER
     Dosage: 1190 MG IV OVER 30 MIN X 3 DAY
     Route: 042
     Dates: start: 20041102, end: 20041104

REACTIONS (1)
  - PYREXIA [None]
